FAERS Safety Report 4956341-2 (Version None)
Quarter: 2006Q1

REPORT INFORMATION
  Report Type: 
  Country: None (occurrence: None)
  Receive Date: 20060323
  Receipt Date: 20060315
  Transmission Date: 20060701
  Serious: Yes (Death, Hospitalization)
  Sender: FDA-Public Use
  Company Number: JP200603004036

PATIENT
  Age: 77 Year
  Sex: Male

DRUGS (4)
  1. GEMZAR [Suspect]
     Indication: PANCREATIC CARCINOMA
     Dosage: 1200 MG, OTHER, INTRAVENOUS
     Route: 042
     Dates: start: 20060222, end: 20060222
  2. BETAMETHASONE [Concomitant]
  3. DIFLUCAN (FLUCONAZOLE) CAPSULE [Concomitant]
  4. LANSOPRAZOLE [Concomitant]

REACTIONS (3)
  - BONE MARROW FAILURE [None]
  - PNEUMONIA [None]
  - RESPIRATORY FAILURE [None]
